FAERS Safety Report 8313192-9 (Version None)
Quarter: 2012Q2

REPORT INFORMATION
  Report Type: 
  Country: None (occurrence: None)
  Receive Date: 20120424
  Receipt Date: 20120119
  Transmission Date: 20120825
  Serious: Yes (Hospitalization)
  Sender: FDA-Public Use
  Company Number: 2012-000111

PATIENT
  Age: 57 Year
  Sex: Female

DRUGS (11)
  1. SOMAC (PANTOPRAZOLE SODIUM SESQUIHYDRATE) [Concomitant]
  2. ENDEP [Concomitant]
  3. CALCIUM CARBONATE [Concomitant]
  4. ACTONEL [Suspect]
     Dosage: 150 MG ONCE MONTHLY, ORAL
     Route: 048
     Dates: start: 20111201, end: 20111201
  5. PREDNISOLONE [Concomitant]
  6. ORDINE	/00036303/ (MORPHINE HYDROCHLORIDE) [Concomitant]
  7. PROTAPHANE (INSULIN HUMAN INJECTION, ISOPHANE) [Concomitant]
  8. METFORMIN HCL [Concomitant]
  9. FENTANYL [Concomitant]
  10. MS CONTIN [Concomitant]
  11. NORVASC [Concomitant]

REACTIONS (3)
  - VOMITING [None]
  - DEHYDRATION [None]
  - NAUSEA [None]
